FAERS Safety Report 7119872-5 (Version None)
Quarter: 2010Q4

REPORT INFORMATION
  Report Type: 
  Country: None (occurrence: None)
  Receive Date: 20101123
  Receipt Date: 20101020
  Transmission Date: 20110411
  Serious: No
  Sender: FDA-Public Use
  Company Number: US-BRISTOL-MYERS SQUIBB COMPANY-15292477

PATIENT
  Age: 62 Year
  Sex: Male

DRUGS (6)
  1. ONGLYZA [Suspect]
  2. CEPHALEXIN [Suspect]
     Indication: LIMB INJURY
  3. ACTOS [Concomitant]
  4. LISINOPRIL AND HYDROCHLOROTHIAZIDE [Concomitant]
     Dosage: 1 DF= 20/12.5(UNITS NOT SPECIFIED)
  5. LOVASTATIN [Concomitant]
  6. AMBIEN [Concomitant]

REACTIONS (1)
  - NAUSEA [None]
